FAERS Safety Report 4621374-2 (Version None)
Quarter: 2005Q1

REPORT INFORMATION
  Report Type: 
  Country: None (occurrence: None)
  Receive Date: 20050325
  Receipt Date: 20050311
  Transmission Date: 20050727
  Serious: Yes (Life-Threatening, Hospitalization)
  Sender: FDA-Public Use
  Company Number: 2005-BP-02000AU

PATIENT
  Age: 80 Year
  Sex: Female

DRUGS (4)
  1. MOBIC [Suspect]
     Indication: OSTEOARTHRITIS
     Dosage: 120 MG (15 MG, 8 TABLETS DAILY) PO
     Route: 048
  2. FGF (FERROUS SULFATE/FOLIC ACID) (TAD) [Concomitant]
  3. OSTELIN 1000 (ERGOCALCIFEROL) (KA) [Concomitant]
  4. TEMAZE (TEMAZEPAM) (TA) [Concomitant]

REACTIONS (4)
  - ANAEMIA [None]
  - DUODENAL ULCER [None]
  - MEDICATION ERROR [None]
  - RENAL FAILURE [None]
